FAERS Safety Report 6339231-2 (Version None)
Quarter: 2009Q3

REPORT INFORMATION
  Report Type: 
  Country: None (occurrence: None)
  Receive Date: 20090903
  Receipt Date: 20090831
  Transmission Date: 20100115
  Serious: Yes (Other)
  Sender: FDA-Public Use
  Company Number: ES-ROXANE LABORATORIES, INC.-2009-RO-00881RO

PATIENT
  Age: 58 Year
  Sex: Female

DRUGS (11)
  1. CYCLOPHOSPHAMIDE [Suspect]
     Indication: BREAST CANCER RECURRENT
     Dates: start: 20011001
  2. CYCLOPHOSPHAMIDE [Suspect]
     Indication: METASTASES TO BONE
  3. CYCLOPHOSPHAMIDE [Suspect]
     Indication: METASTASES TO LUNG
  4. CYCLOPHOSPHAMIDE [Suspect]
     Indication: METASTASES TO LIVER
  5. PREDNISONE [Suspect]
     Indication: CUTANEOUS LUPUS ERYTHEMATOSUS
  6. ADRIAMYCIN PFS [Suspect]
     Indication: BREAST CANCER RECURRENT
     Dates: start: 20011001
  7. ADRIAMYCIN PFS [Suspect]
     Indication: METASTASES TO BONE
  8. ADRIAMYCIN PFS [Suspect]
     Indication: METASTASES TO LUNG
  9. ADRIAMYCIN PFS [Suspect]
     Indication: METASTASES TO LIVER
  10. HYDROXYCHLOROQUINE SULFATE [Concomitant]
     Indication: CUTANEOUS LUPUS ERYTHEMATOSUS
  11. THALIDOMIDE [Concomitant]
     Indication: CUTANEOUS LUPUS ERYTHEMATOSUS

REACTIONS (2)
  - CUTANEOUS LUPUS ERYTHEMATOSUS [None]
  - DRUG INEFFECTIVE [None]
